FAERS Safety Report 4507551-X (Version None)
Quarter: 2004Q4

REPORT INFORMATION
  Report Type: 
  Country: None (occurrence: None)
  Receive Date: 20041118
  Receipt Date: 20041102
  Transmission Date: 20050328
  Serious: Yes (Hospitalization)
  Sender: FDA-Public Use
  Company Number: 8007990

PATIENT
  Age: 13 Year
  Sex: Female

DRUGS (2)
  1. KEPPRA [Suspect]
     Dosage: 40 MG/KG
  2. KEPPRA [Suspect]
     Dosage: 15 MG/KG

REACTIONS (2)
  - HEPATIC ENZYME ABNORMAL [None]
  - PANCREATIC ENZYMES INCREASED [None]
